FAERS Safety Report 10257233 (Version 1)
Quarter: 2014Q2

REPORT INFORMATION
  Report Type: Spontaneous
  Country: AU (occurrence: AU)
  Receive Date: 20140625
  Receipt Date: 20140625
  Transmission Date: 20141212
  Serious: Yes (Other)
  Sender: FDA-Public Use
  Company Number: AU-AMGEN-AUSSP2014046239

PATIENT
  Age: 46 Year
  Sex: Female

DRUGS (5)
  1. PROLIA [Suspect]
     Indication: PRODUCT USED FOR UNKNOWN INDICATION
     Dosage: UNK
     Route: 065
     Dates: start: 20120808, end: 20130501
  2. LIPITOR [Concomitant]
     Dosage: 40 MG, UNK
  3. NEXIUM                             /01479302/ [Concomitant]
     Dosage: 40 MG, UNK
  4. PANADOL OSTEO [Concomitant]
  5. SPIRIVA [Concomitant]

REACTIONS (1)
  - Osteonecrosis of jaw [Not Recovered/Not Resolved]
